FAERS Safety Report 10143915 (Version 2)
Quarter: 2014Q2

REPORT INFORMATION
  Report Type: Spontaneous
  Country: AT (occurrence: AT)
  Receive Date: 20140430
  Receipt Date: 20140512
  Transmission Date: 20141212
  Serious: Yes (Other)
  Sender: FDA-Public Use
  Company Number: AT-GILEAD-2014-0100740

PATIENT
  Age: 56 Year
  Sex: Male

DRUGS (5)
  1. SOVALDI [Suspect]
     Indication: HEPATITIS C
     Dosage: 400 MG, QD
     Route: 065
     Dates: start: 20140201
  2. SOVALDI [Suspect]
     Dosage: 200 UNK, UNK
  3. COPEGUS [Concomitant]
     Dosage: UNK
     Dates: start: 20140201
  4. PEGASYS [Concomitant]
     Dosage: UNK
     Dates: start: 20140201
  5. RED BLOOD CELLS [Concomitant]

REACTIONS (1)
  - Bundle branch block left [Unknown]
